FAERS Safety Report 10195920 (Version 1)
Quarter: 2014Q2

REPORT INFORMATION
  Report Type: Spontaneous
  Country: US (occurrence: None)
  Receive Date: 20140521
  Receipt Date: 20140521
  Transmission Date: 20141212
  Serious: Yes (Other)
  Sender: FDA-Public Use
  Company Number: BTG00126

PATIENT
  Sex: 0

DRUGS (2)
  1. VORAXAZE [Suspect]
     Indication: TOXICITY TO VARIOUS AGENTS
     Dosage: 50 U/KG OVER 5 MIN., INTRAVENOUS
     Route: 042
  2. METHOTREXATE (METHOTREXATE SODIUM) [Suspect]
     Indication: PRODUCT USED FOR UNKNOWN INDICATION

REACTIONS (2)
  - Renal failure acute [None]
  - Oliguria [None]
